FAERS Safety Report 9410860 (Version 1)
Quarter: 2013Q3

REPORT INFORMATION
  Report Type: Spontaneous
  Country: JP (occurrence: JP)
  Receive Date: 20130719
  Receipt Date: 20130719
  Transmission Date: 20140515
  Serious: Yes (Hospitalization)
  Sender: FDA-Public Use
  Company Number: JP-009507513-1307JPN003448

PATIENT
  Age: 57 Year
  Sex: Female
  Weight: 49 kg

DRUGS (9)
  1. PEGINTRON [Suspect]
     Indication: CHRONIC HEPATITIS C
     Dosage: 1.5 MICROGRAM PER KILOGRAM, WEEK
     Route: 058
     Dates: start: 20130312, end: 20130417
  2. REBETOL [Suspect]
     Indication: CHRONIC HEPATITIS C
     Dosage: 200 MG, QD
     Route: 048
     Dates: start: 20130410, end: 20130430
  3. REBETOL [Suspect]
     Dosage: 400 MG, QD
     Route: 048
     Dates: start: 20130312, end: 20130409
  4. TELAVIC [Suspect]
     Indication: CHRONIC HEPATITIS C
     Dosage: 1500 MG, QD
     Route: 048
     Dates: start: 20130312, end: 20130423
  5. NEUFAN [Suspect]
     Indication: PROPHYLAXIS
     Dosage: 100 MG, QD
     Route: 048
     Dates: end: 20130424
  6. URSO [Concomitant]
     Indication: CHRONIC HEPATITIS C
     Dosage: 600 MG, QD
     Route: 048
  7. ROZEREM [Concomitant]
     Dosage: 8 MG, QD
     Route: 048
     Dates: end: 20130509
  8. VOLTAREN SR [Concomitant]
     Indication: PROPHYLAXIS
     Dosage: 37.5 MG/DAY, AS NEEDED
     Route: 048
     Dates: start: 20130312, end: 20130430
  9. GASTER D [Concomitant]
     Indication: PROPHYLAXIS
     Dosage: 40 MG, QD
     Route: 048
     Dates: start: 20130312

REACTIONS (1)
  - Drug eruption [Recovered/Resolved]
